FAERS Safety Report 24223808 (Version 1)
Quarter: 2024Q3

REPORT INFORMATION
  Report Type: Spontaneous
  Country: US (occurrence: None)
  Receive Date: 20240816
  Receipt Date: 20240816
  Transmission Date: 20241016
  Serious: No
  Sender: Public
  Company Number: None

PATIENT
  Age: 47 Year
  Sex: Female
  Weight: 64.8 kg

DRUGS (12)
  1. RINVOQ [Suspect]
     Active Substance: UPADACITINIB
     Indication: Crohn^s disease
     Dosage: OTHER QUANTITY : 1 TABLET(S);?
     Route: 048
     Dates: start: 20240304
  2. CHOLESTYRAMINE [Concomitant]
  3. SERTRALINE HCL [Concomitant]
  4. METOPROLOL [Concomitant]
  5. B12 injection [Concomitant]
  6. Nurtec [Concomitant]
  7. Dotti Patch [Concomitant]
  8. FERAHEME [Concomitant]
     Active Substance: FERUMOXYTOL NON-STOICHIOMETRIC MAGNETITE
  9. Multivitamin [Concomitant]
  10. CALCIUM [Concomitant]
  11. VITAMIN D [Suspect]
     Active Substance: VITAMIN D NOS
  12. TYLENOL PM [Concomitant]
     Active Substance: ACETAMINOPHEN\DIPHENHYDRAMINE

REACTIONS (5)
  - Weight increased [None]
  - Stress [None]
  - Blood cholesterol increased [None]
  - Blood triglycerides increased [None]
  - Low density lipoprotein increased [None]
